FAERS Safety Report 11506893 (Version 1)
Quarter: 2015Q3

REPORT INFORMATION
  Report Type: Spontaneous
  Country: US (occurrence: None)
  Receive Date: 20150914
  Receipt Date: 20150914
  Transmission Date: 20151125
  Serious: Yes (Hospitalization)
  Sender: FDA-Public Use
  Company Number: None

PATIENT
  Age: 69 Year
  Sex: Female
  Weight: 54.43 kg

DRUGS (16)
  1. LIST OPTIC [Concomitant]
  2. CALCIUM [Concomitant]
     Active Substance: CALCIUM
  3. XARELTO [Concomitant]
     Active Substance: RIVAROXABAN
  4. MYACALCIUM [Concomitant]
  5. DEXAMETHASONE. [Concomitant]
     Active Substance: DEXAMETHASONE
  6. GROWTH HARMONES [Concomitant]
  7. SOCAL [Concomitant]
  8. NORCO [Concomitant]
     Active Substance: ACETAMINOPHEN\HYDROCODONE BITARTRATE
  9. DEXILANT [Concomitant]
     Active Substance: DEXLANSOPRAZOLE
  10. SET RACE [Concomitant]
  11. CIPROFLOXACIN. [Suspect]
     Active Substance: CIPROFLOXACIN
     Indication: SINUSITIS
     Route: 048
     Dates: start: 20150328, end: 20150331
  12. D-3 [Concomitant]
     Active Substance: CHOLECALCIFEROL
  13. ARMOUR THYROID [Concomitant]
     Active Substance: THYROID, PORCINE\THYROID, UNSPECIFIED
  14. FUROSEMIDE. [Concomitant]
     Active Substance: FUROSEMIDE
  15. XANAX [Concomitant]
     Active Substance: ALPRAZOLAM
  16. VITAMIN B12 [Concomitant]
     Active Substance: CYANOCOBALAMIN

REACTIONS (1)
  - Thrombosis [None]

NARRATIVE: CASE EVENT DATE: 20150328
